FAERS Safety Report 6687894-4 (Version None)
Quarter: 2010Q2

REPORT INFORMATION
  Report Type: 
  Country: None (occurrence: None)
  Receive Date: 20100420
  Receipt Date: 20100415
  Transmission Date: 20101027
  Serious: Yes (Other)
  Sender: FDA-Public Use
  Company Number: US-BAYER-201014324BCC

PATIENT
  Age: 81 Year
  Sex: Female
  Weight: 110 kg

DRUGS (3)
  1. ALEVE (CAPLET) [Suspect]
     Indication: NECK PAIN
     Dosage: TOTAL DAILY DOSE: 440 MG  UNIT DOSE: 220 MG
     Route: 048
     Dates: start: 20100414, end: 20100414
  2. ALEVE (CAPLET) [Suspect]
     Dosage: TOTAL DAILY DOSE: 220 MG  UNIT DOSE: 220 MG
     Route: 048
     Dates: start: 20100415
  3. OXYGEN [Concomitant]
     Route: 065

REACTIONS (3)
  - AMNESIA [None]
  - FATIGUE [None]
  - SOMNOLENCE [None]
